FAERS Safety Report 17740790 (Version 1)
Quarter: 2020Q2

REPORT INFORMATION
  Report Type: Spontaneous
  Country: US (occurrence: US)
  Receive Date: 20200504
  Receipt Date: 20200504
  Transmission Date: 20200714
  Serious: Yes (Other)
  Sender: FDA-Public Use
  Company Number: None

PATIENT
  Age: 7 Year
  Sex: Male
  Weight: 18 kg

DRUGS (1)
  1. DEXMETHYLPHENIDATE XR [Suspect]
     Active Substance: DEXMETHYLPHENIDATE HYDROCHLORIDE
     Indication: ATTENTION DEFICIT HYPERACTIVITY DISORDER
     Route: 048
     Dates: start: 20191101, end: 20200427

REACTIONS (3)
  - Lethargy [None]
  - Apathy [None]
  - Speech disorder [None]

NARRATIVE: CASE EVENT DATE: 20200427
